FAERS Safety Report 7269985-2 (Version None)
Quarter: 2011Q1

REPORT INFORMATION
  Report Type: 
  Country: None (occurrence: None)
  Receive Date: 20110202
  Receipt Date: 20110118
  Transmission Date: 20110831
  Serious: Yes (Hospitalization)
  Sender: FDA-Public Use
  Company Number: US-ROCHE-751365

PATIENT
  Sex: Male
  Weight: 77.1 kg

DRUGS (1)
  1. ACCUTANE [Suspect]
     Indication: ACNE
     Dosage: CONSUMED INTERMITTENTLY
     Route: 065
     Dates: start: 19870101, end: 19960101

REACTIONS (35)
  - DEPRESSION [None]
  - FRACTURE [None]
  - ANGINA PECTORIS [None]
  - HYPERTENSION [None]
  - BLOOD TRIGLYCERIDES INCREASED [None]
  - POUCHITIS [None]
  - CROHN'S DISEASE [None]
  - PRURITUS [None]
  - SMALL INTESTINAL OBSTRUCTION [None]
  - COLITIS ULCERATIVE [None]
  - CARDIAC DISORDER [None]
  - PANIC ATTACK [None]
  - DUODENITIS [None]
  - ORAL HERPES [None]
  - MUSCULOSKELETAL DISORDER [None]
  - HERNIA [None]
  - SOCIAL FEAR [None]
  - INFLAMMATORY BOWEL DISEASE [None]
  - ANXIETY [None]
  - BONE DISORDER [None]
  - BACK PAIN [None]
  - IRRITABILITY [None]
  - GROIN PAIN [None]
  - SUICIDAL IDEATION [None]
  - SYNCOPE [None]
  - EROSIVE OESOPHAGITIS [None]
  - GASTROOESOPHAGEAL REFLUX DISEASE [None]
  - DRUG ABUSE [None]
  - NECK PAIN [None]
  - HEPATIC ENZYME INCREASED [None]
  - MENTAL DISORDER [None]
  - ARTHRALGIA [None]
  - INSOMNIA [None]
  - LOSS OF EMPLOYMENT [None]
  - GASTRITIS [None]
